FAERS Safety Report 9535769 (Version 1)
Quarter: 2013Q3

REPORT INFORMATION
  Report Type: Spontaneous
  Country: US (occurrence: US)
  Receive Date: 20130919
  Receipt Date: 20130919
  Transmission Date: 20140515
  Serious: No
  Sender: FDA-Public Use
  Company Number: US-B.I. PHARMACEUTICALS,INC./RIDGEFIELD-2013-BI-28277BP

PATIENT
  Age: 82 Year
  Sex: Male

DRUGS (5)
  1. MIRAPEX [Suspect]
     Indication: PRODUCT USED FOR UNKNOWN INDICATION
     Dosage: 1.5 MG
     Route: 048
     Dates: start: 201305
  2. SINEMET [Concomitant]
  3. AMANTADINE [Concomitant]
  4. FINESTARIDE [Concomitant]
  5. ASPIRIN [Concomitant]

REACTIONS (1)
  - Deafness [Unknown]
